FAERS Safety Report 9244953 (Version 1)
Quarter: 2013Q1

REPORT INFORMATION
  Report Type: Spontaneous
  Country: US (occurrence: None)
  Receive Date: 20121130
  Receipt Date: 20121130
  Transmission Date: 20140127
  Serious: Yes (Other)
  Sender: FDA-Public Use
  Company Number: PHEH2012US002566

PATIENT
  Age: 44 Year
  Sex: Female

DRUGS (5)
  1. LAMISIL [Suspect]
     Dosage: 250MG, QD, ORAL
     Route: 048
  2. LESASIN [Concomitant]
  3. VITAMIN D (ERGOCALCIFEROL) [Concomitant]
  4. VITAMIN C [Concomitant]
  5. BETAINE HYDROCHLORIDE (BETAINE HYDROCHLORIDE) [Concomitant]

REACTIONS (6)
  - Jaundice [None]
  - Mood swings [None]
  - Nausea [None]
  - Faeces pale [None]
  - Pruritus [None]
  - Dyspepsia [None]
